FAERS Safety Report 10962709 (Version 1)
Quarter: 2015Q1

REPORT INFORMATION
  Report Type: Spontaneous
  Country: US (occurrence: US)
  Receive Date: 20150327
  Receipt Date: 20150327
  Transmission Date: 20150721
  Serious: Yes (Other)
  Sender: FDA-Public Use
  Company Number: US-009507513-92100555

PATIENT
  Age: 56 Year
  Sex: Male

DRUGS (3)
  1. PROSCAR [Suspect]
     Active Substance: FINASTERIDE
     Indication: BENIGN PROSTATIC HYPERPLASIA
     Dosage: 5 MG, QD
     Route: 048
     Dates: start: 19920914, end: 19921010
  2. DILANTIN [Interacting]
     Active Substance: PHENYTOIN
     Dates: start: 19770101
  3. LOPID [Concomitant]
     Active Substance: GEMFIBROZIL
     Dates: start: 1990

REACTIONS (2)
  - Drug interaction [Unknown]
  - Seizure [Unknown]

NARRATIVE: CASE EVENT DATE: 19921009
